FAERS Safety Report 20664649 (Version 2)
Quarter: 2022Q2

REPORT INFORMATION
  Report Type: Spontaneous
  Country: DE (occurrence: DE)
  Receive Date: 20220401
  Receipt Date: 20220415
  Transmission Date: 20220720
  Serious: Yes (Other)
  Sender: FDA-Public Use
  Company Number: None

PATIENT
  Sex: Female

DRUGS (2)
  1. CYTOTEC [Suspect]
     Active Substance: MISOPROSTOL
     Indication: Labour induction
     Dosage: 50 UG
     Dates: start: 202111
  2. CYTOTEC [Suspect]
     Active Substance: MISOPROSTOL
     Dosage: 2 DF (2 WHOLE TABLETS WERE ADMINISTERED AT 11:45 AM)

REACTIONS (6)
  - Traumatic delivery [Not Recovered/Not Resolved]
  - Injury [Unknown]
  - Precipitate labour [Unknown]
  - Uterine tachysystole [Unknown]
  - Fear of death [Unknown]
  - Off label use [Unknown]

NARRATIVE: CASE EVENT DATE: 20211101
